FAERS Safety Report 14766713 (Version 1)
Quarter: 2018Q2

REPORT INFORMATION
  Report Type: Spontaneous
  Country: ES (occurrence: ES)
  Receive Date: 20180417
  Receipt Date: 20180417
  Transmission Date: 20180711
  Serious: Yes (Other)
  Sender: FDA-Public Use
  Company Number: ES-JNJFOC-20180406459

PATIENT

DRUGS (2)
  1. IBUPROFEN. [Suspect]
     Active Substance: IBUPROFEN
     Route: 065
  2. IBUPROFEN. [Suspect]
     Active Substance: IBUPROFEN
     Indication: DRUG PROVOCATION TEST
     Route: 065

REACTIONS (7)
  - Urticaria [Unknown]
  - Wheezing [Unknown]
  - Anaphylactic reaction [Unknown]
  - Product use in unapproved indication [Unknown]
  - Off label use [Unknown]
  - Hypersensitivity [Unknown]
  - Angioedema [Unknown]
